FAERS Safety Report 19982045 (Version 3)
Quarter: 2021Q4

REPORT INFORMATION
  Report Type: Report from Study
  Country: US (occurrence: None)
  Receive Date: 20211022
  Receipt Date: 20211113
  Transmission Date: 20220303
  Serious: Yes (Hospitalization)
  Sender: FDA-Public Use
  Company Number: US-ROCHE-2938253

PATIENT
  Age: 69 Year
  Sex: Male
  Weight: 119 kg

DRUGS (12)
  1. OBINUTUZUMAB [Suspect]
     Active Substance: OBINUTUZUMAB
     Indication: Chronic lymphocytic leukaemia
     Dosage: LAST DOSE OF OBINUTUZUMAB ADMINISTERED PRIOR TO SAE: 26/MAY/2021
     Route: 042
     Dates: start: 20210106
  2. OBINUTUZUMAB [Suspect]
     Active Substance: OBINUTUZUMAB
     Route: 042
  3. OBINUTUZUMAB [Suspect]
     Active Substance: OBINUTUZUMAB
     Route: 042
  4. OBINUTUZUMAB [Suspect]
     Active Substance: OBINUTUZUMAB
     Route: 042
  5. OBINUTUZUMAB [Suspect]
     Active Substance: OBINUTUZUMAB
     Route: 042
  6. VENETOCLAX [Suspect]
     Active Substance: VENETOCLAX
     Indication: Chronic lymphocytic leukaemia
     Dosage: DAYS 1-7 CYCLE 3?LAST DOSE OF VENETOCLAX ADMINISTERED PRIOR TO SAE: 14/SEP/2021
     Route: 048
     Dates: start: 20210303
  7. VENETOCLAX [Suspect]
     Active Substance: VENETOCLAX
     Dosage: DAYS 8-14, CYCLE 3
     Route: 048
  8. VENETOCLAX [Suspect]
     Active Substance: VENETOCLAX
     Dosage: DAYS 15-21, CYCLE 3
     Route: 048
  9. VENETOCLAX [Suspect]
     Active Substance: VENETOCLAX
     Dosage: DAYS 22-28, CYCLE 3
     Route: 048
  10. VENETOCLAX [Suspect]
     Active Substance: VENETOCLAX
     Dosage: DAYS 1-28, CYCLES 4-14
     Route: 048
  11. IBRUTINIB [Suspect]
     Active Substance: IBRUTINIB
     Indication: Chronic lymphocytic leukaemia
     Dosage: ON DAYS 1-28, CYCLES 1-19?LAST DOSE OF IBRUTINIB ADMINISTERED PRIOR TO SAE: 14/SEP/2021
     Route: 048
     Dates: start: 20210106
  12. APIXABAN [Suspect]
     Active Substance: APIXABAN
     Indication: Product used for unknown indication
     Route: 065

REACTIONS (2)
  - Upper gastrointestinal haemorrhage [Recovered/Resolved]
  - Anaemia [Recovered/Resolved]

NARRATIVE: CASE EVENT DATE: 20210914
